FAERS Safety Report 11585494 (Version 1)
Quarter: 2015Q4

REPORT INFORMATION
  Report Type: Spontaneous
  Country: US (occurrence: US)
  Receive Date: 20151001
  Receipt Date: 20151001
  Transmission Date: 20160304
  Serious: Yes (Other)
  Sender: FDA-Public Use
  Company Number: US-RB PHARMACEUTICALS LIMITED-INDV-083396-2015

PATIENT
  Sex: Female

DRUGS (1)
  1. SUBOXONE [Suspect]
     Active Substance: BUPRENORPHINE HYDROCHLORIDE\NALOXONE HYDROCHLORIDE
     Indication: PRODUCT USED FOR UNKNOWN INDICATION
     Dosage: UNK
     Route: 065

REACTIONS (13)
  - Swelling [Unknown]
  - Pain in extremity [Unknown]
  - Nausea [Unknown]
  - Dizziness [Unknown]
  - Tremor [Unknown]
  - Dysarthria [Unknown]
  - Joint swelling [Unknown]
  - Arthralgia [Unknown]
  - Back pain [Unknown]
  - Blister [Unknown]
  - Hypopnoea [Unknown]
  - Vision blurred [Unknown]
  - Ankle fracture [Unknown]
